FAERS Safety Report 6171988-6 (Version None)
Quarter: 2009Q2

REPORT INFORMATION
  Report Type: 
  Country: None (occurrence: None)
  Receive Date: 20090429
  Receipt Date: 20090427
  Transmission Date: 20091009
  Serious: Yes (Death)
  Sender: FDA-Public Use
  Company Number: PHHY2009BR02006

PATIENT
  Age: 52 Year
  Sex: Male

DRUGS (1)
  1. EXFORGE [Suspect]
     Dosage: 320/10 MG

REACTIONS (1)
  - INFARCTION [None]
